FAERS Safety Report 20410321 (Version 1)
Quarter: 2022Q1

REPORT INFORMATION
  Report Type: Other
  Country: TR (occurrence: None)
  Receive Date: 20220201
  Receipt Date: 20220201
  Transmission Date: 20220424
  Serious: Yes (Hospitalization)
  Sender: FDA-Public Use
  Company Number: TR-ROCHE-3015235

PATIENT
  Age: 66 Year
  Sex: Male

DRUGS (3)
  1. OBINUTUZUMAB [Suspect]
     Active Substance: OBINUTUZUMAB
     Indication: Follicular lymphoma
     Route: 042
  2. BENDAMUSTINE [Concomitant]
     Active Substance: BENDAMUSTINE
  3. IBRUTINIB [Concomitant]
     Active Substance: IBRUTINIB

REACTIONS (2)
  - COVID-19 pneumonia [Not Recovered/Not Resolved]
  - Viral test positive [Not Recovered/Not Resolved]
